FAERS Safety Report 12758504 (Version 2)
Quarter: 2016Q3

REPORT INFORMATION
  Report Type: Spontaneous
  Country: US (occurrence: US)
  Receive Date: 20160919
  Receipt Date: 20160923
  Transmission Date: 20161109
  Serious: Yes (Life-Threatening)
  Sender: FDA-Public Use
  Company Number: GXBR2016US002866

PATIENT
  Sex: Female

DRUGS (1)
  1. GLATOPA [Suspect]
     Active Substance: GLATIRAMER ACETATE
     Indication: PRODUCT USED FOR UNKNOWN INDICATION
     Dosage: UNK DF, UNK
     Route: 065

REACTIONS (7)
  - Injection site erythema [Unknown]
  - Feeling abnormal [Unknown]
  - Vision blurred [Unknown]
  - Memory impairment [Unknown]
  - Movement disorder [Unknown]
  - Injection site pain [Unknown]
  - Injection site mass [Unknown]
